FAERS Safety Report 4397599-0 (Version None)
Quarter: 2004Q3

REPORT INFORMATION
  Report Type: 
  Country: None (occurrence: None)
  Receive Date: 20040708
  Receipt Date: 20040629
  Transmission Date: 20050211
  Serious: No
  Sender: FDA-Public Use
  Company Number: FI-2004-027123

PATIENT
  Age: 58 Year
  Sex: Female
  Weight: 76 kg

DRUGS (2)
  1. MLS-LNG -IUS (MLS-LNG-IUS)IUS [Suspect]
     Indication: HORMONE REPLACEMENT THERAPY
     Dosage: 10 UG/DAY, CONT, INTRA-UTERINE
     Route: 015
     Dates: start: 20010510, end: 20040414
  2. CLIMARA [Suspect]
     Indication: HORMONE REPLACEMENT THERAPY
     Dosage: 50 UG/DAY, CONT, TRANSDERMAL
     Route: 062
     Dates: start: 20010510, end: 20040414

REACTIONS (1)
  - BREAST CANCER [None]
